FAERS Safety Report 9379783 (Version 1)
Quarter: 2013Q2

REPORT INFORMATION
  Report Type: Spontaneous
  Country: CH (occurrence: None)
  Receive Date: 20130627
  Receipt Date: 20130627
  Transmission Date: 20140414
  Serious: Yes (Other)
  Sender: FDA-Public Use
  Company Number: 2013P1009645

PATIENT
  Age: 58 Year
  Sex: Female

DRUGS (3)
  1. INFUMORPH [Suspect]
     Indication: PAIN
     Route: 037
     Dates: end: 20120925
  2. CLONIDINE [Suspect]
     Indication: PAIN
     Route: 037
     Dates: end: 20120925
  3. BUPIVACAINE [Suspect]
     Indication: PAIN
     Route: 037

REACTIONS (2)
  - Neurological symptom [None]
  - Drug ineffective [None]
